FAERS Safety Report 7388908-9 (Version None)
Quarter: 2011Q2

REPORT INFORMATION
  Report Type: 
  Country: None (occurrence: None)
  Receive Date: 20110401
  Receipt Date: 20110329
  Transmission Date: 20111010
  Serious: Yes (Hospitalization)
  Sender: FDA-Public Use
  Company Number: US-ALEXION-A201100028

PATIENT

DRUGS (3)
  1. SOLIRIS [Suspect]
     Dosage: 900 MG, Q2W
     Route: 042
     Dates: start: 20101116
  2. SOLIRIS [Suspect]
     Indication: PAROXYSMAL NOCTURNAL HAEMOGLOBINURIA
     Dosage: 600 MG, QW
     Route: 042
     Dates: start: 20101019, end: 20101101
  3. EXJADE [Concomitant]
     Indication: IRON OVERLOAD
     Dosage: UNK
     Route: 048
     Dates: start: 20101101

REACTIONS (5)
  - ARTHRALGIA [None]
  - INFLUENZA [None]
  - HAEMOGLOBIN DECREASED [None]
  - PYREXIA [None]
  - BLOOD IRON INCREASED [None]
